FAERS Safety Report 5038012-X (Version None)
Quarter: 2006Q2

REPORT INFORMATION
  Report Type: 
  Country: None (occurrence: None)
  Receive Date: 20060623
  Receipt Date: 20060607
  Transmission Date: 20061013
  Serious: Yes (Hospitalization)
  Sender: FDA-Public Use
  Company Number: WAES 0605GBR00111

PATIENT
  Age: 44 Year
  Sex: Male

DRUGS (5)
  1. DECADRON [Suspect]
     Indication: ANALGESIC EFFECT
     Dosage: SEE IMAGE
     Route: 048
     Dates: start: 20060321, end: 20060419
  2. DECADRON [Suspect]
     Indication: ANALGESIC EFFECT
     Dosage: SEE IMAGE
     Route: 048
     Dates: start: 20060420, end: 20060427
  3. DECADRON [Suspect]
     Indication: ANALGESIC EFFECT
     Dosage: SEE IMAGE
     Route: 048
     Dates: start: 20060428, end: 20060428
  4. TEMOZOLOMIDE [Suspect]
     Indication: METASTATIC MALIGNANT MELANOMA
     Dosage: SEE IMAGE
     Route: 048
     Dates: start: 20060308, end: 20060424
  5. TEMOZOLOMIDE [Suspect]
     Indication: METASTATIC MALIGNANT MELANOMA
     Dosage: SEE IMAGE
     Route: 048
     Dates: start: 20060425

REACTIONS (4)
  - ATRIAL FIBRILLATION [None]
  - CHEYNE-STOKES RESPIRATION [None]
  - DIABETES MELLITUS [None]
  - DYSPNOEA [None]
